FAERS Safety Report 5677253-5 (Version None)
Quarter: 2008Q1

REPORT INFORMATION
  Report Type: 
  Country: None (occurrence: None)
  Receive Date: 20080324
  Receipt Date: 20080312
  Transmission Date: 20080703
  Serious: Yes (Other)
  Sender: FDA-Public Use
  Company Number: US-BAYER-200816802NA

PATIENT
  Age: 47 Year
  Sex: Female
  Weight: 49 kg

DRUGS (1)
  1. ULTRAVIST 300 [Suspect]
     Indication: COMPUTERISED TOMOGRAM
     Route: 042
     Dates: start: 20080311, end: 20080311

REACTIONS (2)
  - LIP SWELLING [None]
  - URTICARIA [None]
